FAERS Safety Report 6050045-3 (Version None)
Quarter: 2009Q1

REPORT INFORMATION
  Report Type: 
  Country: None (occurrence: None)
  Receive Date: 20090121
  Receipt Date: 20090105
  Transmission Date: 20090719
  Serious: Yes (Death)
  Sender: FDA-Public Use
  Company Number: AE 2009-002

PATIENT
  Age: 55 Year
  Sex: Male

DRUGS (9)
  1. FAZOCLO ODT [Suspect]
     Indication: BIPOLAR DISORDER
     Dosage: 300 MG QHS PO
     Route: 048
     Dates: start: 20060911, end: 20081124
  2. FAZOCLO ODT [Suspect]
     Indication: SCHIZOAFFECTIVE DISORDER
     Dosage: 300 MG QHS PO
     Route: 048
     Dates: start: 20060911, end: 20081124
  3. DEPAKOTE ER [Concomitant]
  4. SEROQUEL [Concomitant]
  5. RESTORIL [Concomitant]
  6. DIOVAN [Concomitant]
  7. TRAVATAN [Concomitant]
  8. NIFEDIPINE [Concomitant]
  9. COSOPT [Concomitant]

REACTIONS (1)
  - DEATH [None]
